FAERS Safety Report 23695002 (Version 2)
Quarter: 2024Q3

REPORT INFORMATION
  Report Type: Spontaneous
  Country: CA (occurrence: CA)
  Receive Date: 20240402
  Receipt Date: 20240711
  Transmission Date: 20241017
  Serious: Yes (Other)
  Sender: SANDOZ
  Company Number: CA-002147023-NVSC2024CA052465

PATIENT
  Age: 8 Year
  Sex: Female
  Weight: 28.8 kg

DRUGS (4)
  1. CYCLOSPORINE [Suspect]
     Active Substance: CYCLOSPORINE
     Indication: Urticaria
     Dosage: 105 MG, BID (NEORAL)
     Route: 048
     Dates: start: 20230708
  2. MONTELUKAST [Suspect]
     Active Substance: MONTELUKAST SODIUM
     Indication: Idiopathic urticaria
     Dosage: UNK
     Route: 065
  3. Reactine [Concomitant]
     Indication: Product used for unknown indication
     Dosage: 10 MG, QD (PRN)
     Route: 065
  4. RUPATADINE FUMARATE [Concomitant]
     Active Substance: RUPATADINE FUMARATE
     Indication: Product used for unknown indication
     Dosage: UNK
     Route: 065

REACTIONS (5)
  - Angioedema [Unknown]
  - Chronic spontaneous urticaria [Unknown]
  - Urticaria [Unknown]
  - Drug ineffective [Unknown]
  - Off label use [Unknown]
